FAERS Safety Report 13497746 (Version 4)
Quarter: 2017Q3

REPORT INFORMATION
  Report Type: Report from Study
  Country: None (occurrence: AU)
  Receive Date: 20170428
  Receipt Date: 20170915
  Transmission Date: 20171127
  Serious: Yes (Hospitalization)
  Sender: FDA-Public Use
  Company Number: AU-ABBVIE-17P-008-1950899-00

PATIENT
  Age: 64 Year
  Sex: Male

DRUGS (8)
  1. DEXAMETHASONE. [Suspect]
     Active Substance: DEXAMETHASONE
     Indication: PLASMA CELL MYELOMA
     Dosage: ON DAYS 1,2,4,5,8,9,11, AND 12 OF 21 DAY CYCLE
     Route: 048
     Dates: start: 20160927, end: 20170405
  2. VALACICLOVIR [Concomitant]
     Active Substance: VALACYCLOVIR HYDROCHLORIDE
     Indication: PROPHYLAXIS
  3. PANTOPRAZOLE [Concomitant]
     Active Substance: PANTOPRAZOLE
     Indication: GASTRITIS PROPHYLAXIS
     Dates: start: 20160927
  4. BORTEZOMIB [Suspect]
     Active Substance: BORTEZOMIB
     Indication: PLASMA CELL MYELOMA
     Dosage: ON DAYS 1,4,8, AND 11 OF 21 DAY CYCLE
     Route: 058
     Dates: start: 20160927, end: 20170113
  5. VALACICLOVIR [Concomitant]
     Active Substance: VALACYCLOVIR HYDROCHLORIDE
     Indication: HERPES SIMPLEX
     Route: 048
     Dates: start: 20160926
  6. BORTEZOMIB [Suspect]
     Active Substance: BORTEZOMIB
     Dosage: ON DAYS 1,4,8, AND 11 OF 21 DAY CYCLE
     Route: 058
     Dates: start: 20170131, end: 20170404
  7. CHLORSIG [Concomitant]
     Active Substance: CHLORAMPHENICOL
     Indication: CONJUNCTIVITIS
     Route: 047
     Dates: start: 20161220
  8. VENETOCLAX. [Suspect]
     Active Substance: VENETOCLAX
     Indication: PLASMA CELL MYELOMA
     Route: 048
     Dates: start: 20160927, end: 20170411

REACTIONS (3)
  - Chondrocalcinosis pyrophosphate [Not Recovered/Not Resolved]
  - Streptococcal bacteraemia [Recovered/Resolved]
  - Endocarditis [Recovered/Resolved]

NARRATIVE: CASE EVENT DATE: 20170410
